FAERS Safety Report 19982485 (Version 2)
Quarter: 2021Q4

REPORT INFORMATION
  Report Type: Report from Study
  Country: None (occurrence: CA)
  Receive Date: 20211022
  Receipt Date: 20211025
  Transmission Date: 20220303
  Serious: Yes (Hospitalization)
  Sender: FDA-Public Use
  Company Number: CA-ABBVIE-21K-028-4128512-00

PATIENT
  Age: 72 Year
  Sex: Female

DRUGS (5)
  1. HUMIRA [Suspect]
     Active Substance: ADALIMUMAB
     Indication: Crohn^s disease
     Route: 058
     Dates: start: 20170921
  2. MAGNESIUM [Suspect]
     Active Substance: MAGNESIUM
     Indication: Supplementation therapy
     Route: 065
  3. MAGNESIUM [Suspect]
     Active Substance: MAGNESIUM
     Route: 065
  4. MAGNESIUM [Suspect]
     Active Substance: MAGNESIUM
     Route: 065
  5. MAGNESIUM [Suspect]
     Active Substance: MAGNESIUM
     Route: 065
     Dates: start: 20211015

REACTIONS (9)
  - Panic attack [Unknown]
  - Blood albumin decreased [Not Recovered/Not Resolved]
  - Joint dislocation [Recovering/Resolving]
  - Fall [Recovered/Resolved]
  - Anxiety [Unknown]
  - Abdominal pain [Unknown]
  - Arrhythmia [Unknown]
  - Diarrhoea [Recovering/Resolving]
  - Gastroenteritis [Unknown]

NARRATIVE: CASE EVENT DATE: 20190101
